FAERS Safety Report 14818053 (Version 1)
Quarter: 2018Q2

REPORT INFORMATION
  Report Type: Spontaneous
  Country: KR (occurrence: KR)
  Receive Date: 20180427
  Receipt Date: 20180427
  Transmission Date: 20180711
  Serious: Yes (Other)
  Sender: FDA-Public Use
  Company Number: KR-INGENUS PHARMACEUTICALS, LLC-INF201804-000348

PATIENT
  Age: 64 Year
  Sex: Male

DRUGS (10)
  1. GEMIFLOXACIN [Concomitant]
     Active Substance: GEMIFLOXACIN
     Indication: PNEUMONIA
  2. WARFARIN [Concomitant]
     Active Substance: WARFARIN
  3. PREMETREXED [Concomitant]
     Active Substance: PEMETREXED
     Indication: LUNG ADENOCARCINOMA STAGE IV
     Route: 042
  4. DOCETAXEL. [Suspect]
     Active Substance: DOCETAXEL
     Indication: LUNG ADENOCARCINOMA STAGE IV
  5. PREMETREXED [Concomitant]
     Active Substance: PEMETREXED
     Route: 042
     Dates: start: 201412, end: 201505
  6. CISPLASTIN [Concomitant]
     Active Substance: CISPLATIN
     Indication: LUNG ADENOCARCINOMA STAGE IV
     Route: 042
     Dates: start: 201412, end: 201505
  7. IRESSA [Concomitant]
     Active Substance: GEFITINIB
  8. CARBOPLATIN. [Suspect]
     Active Substance: CARBOPLATIN
     Indication: LUNG ADENOCARCINOMA STAGE IV
     Dosage: (AUC) - 6 MG/ML*MIN
     Route: 042
  9. CANDESARTAN. [Concomitant]
     Active Substance: CANDESARTAN
  10. CEFPODOXIME [Concomitant]
     Active Substance: CEFPODOXIME
     Indication: PNEUMONIA

REACTIONS (4)
  - Chondritis [Unknown]
  - Necrosis [Unknown]
  - Product use in unapproved indication [Unknown]
  - Deformity [Unknown]
